FAERS Safety Report 8616158-4 (Version None)
Quarter: 2012Q3

REPORT INFORMATION
  Report Type: 
  Country: None (occurrence: None)
  Receive Date: 20120823
  Receipt Date: 20120815
  Transmission Date: 20120928
  Serious: Yes (Life-Threatening, Hospitalization)
  Sender: FDA-Public Use
  Company Number: US-MERCK-1206USA03021

PATIENT

DRUGS (2)
  1. VORINOSTAT-MYCOSIS FUNGOIDES [Suspect]
     Dosage: 230 MG/M2,ON DAYS 1-5 WEEKLY
     Route: 048
     Dates: start: 20120809, end: 20120810
  2. VORINOSTAT-MYCOSIS FUNGOIDES [Suspect]
     Indication: BRAIN STEM GLIOMA
     Dosage: 230 MG/M2, UNK
     Route: 048
     Dates: start: 20120328, end: 20120508

REACTIONS (3)
  - LYMPHOCYTE COUNT DECREASED [None]
  - UPPER RESPIRATORY TRACT INFECTION [None]
  - DEHYDRATION [None]
